FAERS Safety Report 8681259 (Version 2)
Quarter: 2013Q1

REPORT INFORMATION
  Report Type: Spontaneous
  Country: US (occurrence: US)
  Receive Date: 20120725
  Receipt Date: 20130211
  Transmission Date: 20140127
  Serious: Yes (Hospitalization)
  Sender: FDA-Public Use
  Company Number: US-009507513-1207USA007868

PATIENT
  Age: 56 None
  Sex: Female
  Weight: 85.71 kg

DRUGS (1)
  1. VICTRELIS [Suspect]
     Indication: HEPATITIS C
     Dosage: 800 MG, TID
     Route: 048
     Dates: start: 20120114, end: 201206

REACTIONS (2)
  - Bronchitis [Unknown]
  - Pneumonia [Unknown]
